FAERS Safety Report 8448166-0 (Version None)
Quarter: 2012Q2

REPORT INFORMATION
  Report Type: 
  Country: None (occurrence: None)
  Receive Date: 20120619
  Receipt Date: 20120612
  Transmission Date: 20120825
  Serious: Yes (Disabling)
  Sender: FDA-Public Use
  Company Number: US-UCBSA-048640

PATIENT
  Age: 42 Year
  Sex: Female
  Weight: 70.76 kg

DRUGS (16)
  1. HUMIRA [Suspect]
     Indication: CROHN'S DISEASE
     Dosage: UNKNOWN DOSE
     Dates: start: 20101201, end: 20111207
  2. PREDNISONE [Concomitant]
     Indication: CROHN'S DISEASE
     Dosage: UNKNOWN DOSE
     Dates: start: 20001001, end: 20030601
  3. MULTI-VITAMIN [Concomitant]
     Indication: CROHN'S DISEASE
     Dosage: UNKNOWN DOSE
     Route: 048
  4. WELLBUTRIN [Concomitant]
     Route: 048
  5. PREDNISONE [Concomitant]
  6. BENTYL [Concomitant]
     Route: 048
  7. CIMZIA [Suspect]
     Indication: CROHN'S DISEASE
     Route: 058
     Dates: start: 20100403
  8. CIMZIA [Suspect]
     Route: 058
     Dates: start: 20090827, end: 20100403
  9. PREDNISONE [Concomitant]
     Dosage: UNKNOWN DOSE
     Dates: start: 20080612, end: 20080701
  10. PREDNISONE [Concomitant]
     Dates: start: 20090723, end: 20091001
  11. WELLBUTRIN [Concomitant]
     Route: 048
  12. PREDNISONE [Concomitant]
     Dosage: UNKNOWN DOSE
     Dates: start: 20080814, end: 20081101
  13. CALCIUM [Concomitant]
     Indication: CROHN'S DISEASE
     Route: 048
  14. NEXIUM [Concomitant]
  15. BENTYL [Concomitant]
     Route: 048
  16. LEXAPRO [Concomitant]
     Route: 048

REACTIONS (1)
  - CROHN'S DISEASE [None]
